FAERS Safety Report 11422959 (Version 1)
Quarter: 2015Q3

REPORT INFORMATION
  Report Type: Other
  Country: None (occurrence: US)
  Receive Date: 20150827
  Receipt Date: 20150827
  Transmission Date: 20151125
  Serious: Yes (Life-Threatening)
  Sender: FDA-Public Use
  Company Number: US-COUNTY LINE PHARMACEUTICALS, LLC-1041417

PATIENT
  Age: 40 Year
  Sex: Male

DRUGS (5)
  1. NIFEDIPINE ER [Concomitant]
     Active Substance: NIFEDIPINE
     Route: 048
  2. LABETALOL [Suspect]
     Active Substance: LABETALOL\LABETALOL HYDROCHLORIDE
     Indication: HYPERTENSION
     Route: 048
  3. CLONIDINE TRANSDERMAL SYSTEM [Concomitant]
     Active Substance: CLONIDINE
     Route: 062
  4. ESMOLOL [Concomitant]
     Active Substance: ESMOLOL HYDROCHLORIDE
  5. NICARDIPINE HYDROCHLORIDE. [Concomitant]
     Active Substance: NICARDIPINE HYDROCHLORIDE
     Route: 042

REACTIONS (8)
  - Accidental overdose [Recovering/Resolving]
  - Chest pain [Unknown]
  - Nausea [Unknown]
  - Dyspnoea [Unknown]
  - Pulseless electrical activity [Recovering/Resolving]
  - Hypotension [Unknown]
  - Sinus bradycardia [Unknown]
  - Hyperhidrosis [Unknown]
